FAERS Safety Report 8963752 (Version 1)
Quarter: 2012Q4

REPORT INFORMATION
  Report Type: Report from Study
  Country: FR (occurrence: FR)
  Receive Date: 20121214
  Receipt Date: 20121214
  Transmission Date: 20130627
  Serious: Yes (Hospitalization)
  Sender: FDA-Public Use
  Company Number: FR-ELI_LILLY_AND_COMPANY-FR201212001113

PATIENT
  Age: 50 Year
  Sex: Female
  Weight: 56 kg

DRUGS (10)
  1. PEMETREXED [Suspect]
     Indication: NON-SMALL CELL LUNG CANCER
     Dosage: 775 mg, 1 dose every  three weeks
     Route: 042
     Dates: start: 20090924
  2. BEVACIZUMAB [Suspect]
     Indication: NON-SMALL CELL LUNG CANCER
     Dosage: 425 mg, 1 dose every three weeks
     Route: 042
     Dates: start: 20090924
  3. CISPLATIN [Suspect]
     Indication: NON-SMALL CELL LUNG CANCER
     Dosage: 116 mg, 1 dose every three weeks
     Route: 042
     Dates: start: 20090924
  4. NICOPATCH [Concomitant]
     Dosage: qd
     Dates: start: 20090909
  5. INOVAN [Concomitant]
     Dosage: UNK
     Dates: start: 20090916
  6. SPECIAFOLDINE [Concomitant]
     Dosage: 0.4 (units not provided), qd
  7. XANAX [Concomitant]
     Dosage: 0.5 mg, qd
     Dates: start: 20090923
  8. SEROPLEX [Concomitant]
     Dosage: 5 mg, qd
     Dates: start: 20090923
  9. TOPALGIC [Concomitant]
     Dosage: 150 mg, qd
  10. EFFERALGAN                         /00020001/ [Concomitant]
     Dosage: UNK

REACTIONS (1)
  - Hepatotoxicity [Recovered/Resolved]
